FAERS Safety Report 7604536-1 (Version None)
Quarter: 2011Q3

REPORT INFORMATION
  Report Type: 
  Country: None (occurrence: None)
  Receive Date: 20110712
  Receipt Date: 20110628
  Transmission Date: 20111222
  Serious: Yes (Death)
  Sender: FDA-Public Use
  Company Number: US-PFIZER INC-2008154066

PATIENT
  Age: 48 Year
  Sex: Male

DRUGS (6)
  1. ALLOPURINOL [Suspect]
     Dosage: UNK
     Route: 048
     Dates: end: 20070101
  2. LISINOPRIL [Suspect]
     Dosage: UNK
     Route: 048
     Dates: end: 20070101
  3. EZETIMIBE [Suspect]
     Dosage: UNK
     Route: 048
     Dates: end: 20070101
  4. LITHIUM CARBONATE [Suspect]
     Dosage: UNK
     Route: 048
     Dates: end: 20070101
  5. SIMVASTATIN [Suspect]
     Dosage: UNK
     Route: 048
     Dates: end: 20070101
  6. METFORMIN HCL [Suspect]
     Dosage: UNK
     Route: 048
     Dates: end: 20070101

REACTIONS (1)
  - DEATH [None]
